FAERS Safety Report 18915691 (Version 1)
Quarter: 2021Q1

REPORT INFORMATION
  Report Type: Spontaneous
  Country: ES (occurrence: ES)
  Receive Date: 20210219
  Receipt Date: 20210219
  Transmission Date: 20210420
  Serious: No
  Sender: FDA-Public Use
  Company Number: ES-LUPIN PHARMACEUTICALS INC.-2021-01988

PATIENT
  Age: 33 Year
  Sex: Female

DRUGS (6)
  1. CEFTRIAXONE. [Suspect]
     Active Substance: CEFTRIAXONE
     Indication: TRICHOMONIASIS
     Dosage: 250 MILLIGRAM IN TOTAL
     Route: 030
  2. METRONIDAZOLE. [Suspect]
     Active Substance: METRONIDAZOLE
     Indication: CERVICITIS GONOCOCCAL
  3. AMPICILLIN [Suspect]
     Active Substance: AMPICILLIN
     Indication: SYSTEMIC CANDIDA
     Dosage: 2 GRAM, UNK
     Route: 042
  4. METRONIDAZOLE. [Suspect]
     Active Substance: METRONIDAZOLE
     Indication: TRICHOMONIASIS
     Dosage: 500 MILLIGRAM, BID
     Route: 048
  5. CEFTRIAXONE. [Suspect]
     Active Substance: CEFTRIAXONE
     Indication: CERVICITIS GONOCOCCAL
  6. GENTAMICIN. [Suspect]
     Active Substance: GENTAMICIN
     Indication: SYSTEMIC CANDIDA
     Dosage: 240 MILLIGRAM, UNK
     Route: 065

REACTIONS (2)
  - Exposure during pregnancy [Unknown]
  - Normal newborn [Unknown]
